FAERS Safety Report 7473776-7 (Version None)
Quarter: 2011Q2

REPORT INFORMATION
  Report Type: 
  Country: None (occurrence: None)
  Receive Date: 20110511
  Receipt Date: 20110504
  Transmission Date: 20111010
  Serious: Yes (Other)
  Sender: FDA-Public Use
  Company Number: US-JNJFOC-20100301532

PATIENT
  Sex: Male
  Weight: 102.97 kg

DRUGS (2)
  1. TYLENOL-500 [Suspect]
     Route: 048
  2. TYLENOL-500 [Suspect]
     Indication: TOOTHACHE
     Dosage: EVERY 2-3 DAYS FOR ABOUT 3 WEEKS
     Route: 048

REACTIONS (10)
  - VOMITING [None]
  - ABDOMINAL PAIN UPPER [None]
  - HEADACHE [None]
  - DIZZINESS [None]
  - ABASIA [None]
  - PRODUCT QUALITY ISSUE [None]
  - HYPOKINESIA [None]
  - MALAISE [None]
  - DIARRHOEA [None]
  - NAUSEA [None]
